FAERS Safety Report 5192450-3 (Version None)
Quarter: 2006Q4

REPORT INFORMATION
  Report Type: 
  Country: None (occurrence: None)
  Receive Date: 20061227
  Receipt Date: 20061220
  Transmission Date: 20070319
  Serious: Yes (Hospitalization)
  Sender: FDA-Public Use
  Company Number: US-ABBOTT-06P-163-0353910-00

PATIENT
  Sex: Female
  Weight: 78.996 kg

DRUGS (1)
  1. BIAXIN XL [Suspect]
     Indication: SINUSITIS
     Route: 048
     Dates: start: 20061101

REACTIONS (2)
  - ATRIAL FIBRILLATION [None]
  - FEELING ABNORMAL [None]
